FAERS Safety Report 9337184 (Version 2)
Quarter: 2013Q3

REPORT INFORMATION
  Report Type: Spontaneous
  Country: IT (occurrence: IT)
  Receive Date: 20130607
  Receipt Date: 20130710
  Transmission Date: 20140515
  Serious: Yes (Other)
  Sender: FDA-Public Use
  Company Number: IT-MERCK-1306ITA002650

PATIENT
  Age: 60 Year
  Sex: Male
  Weight: 77 kg

DRUGS (3)
  1. PEGINTRON [Suspect]
     Indication: HEPATIC CIRRHOSIS
     Dosage: 120 MICROGRAM, QW
     Route: 058
     Dates: start: 20121005
  2. COPEGUS [Suspect]
     Indication: HEPATIC CIRRHOSIS
     Dosage: 1200 MG DAILY
     Route: 048
     Dates: start: 20121005
  3. METFORMIN HYDROCHLORIDE [Concomitant]
     Dosage: UNK
     Route: 048

REACTIONS (1)
  - Anaemia [Recovered/Resolved]
